FAERS Safety Report 10906351 (Version 3)
Quarter: 2015Q3

REPORT INFORMATION
  Report Type: Report from Study
  Country: AU (occurrence: AU)
  Receive Date: 20150312
  Receipt Date: 20150709
  Transmission Date: 20151125
  Serious: Yes (Other)
  Sender: FDA-Public Use
  Company Number: AU-ABBVIE-14K-008-1299215-00

PATIENT
  Age: 59 Year
  Sex: Female

DRUGS (21)
  1. COLOXYL [Concomitant]
     Active Substance: DOCUSATE SODIUM
     Indication: CONSTIPATION
  2. NASONEX [Concomitant]
     Active Substance: MOMETASONE FUROATE
     Indication: PRODUCT USED FOR UNKNOWN INDICATION
  3. REFRESH OPTIVE [Concomitant]
     Active Substance: CARBOXYMETHYLCELLULOSE SODIUM\GLYCERIN
     Indication: BLEPHARITIS
  4. HUMIRA [Suspect]
     Active Substance: ADALIMUMAB
     Indication: PSORIATIC ARTHROPATHY
     Route: 065
     Dates: start: 20141010, end: 201502
  5. LEUCOVORIN CALCIUM. [Concomitant]
     Active Substance: LEUCOVORIN CALCIUM
     Indication: PRODUCT USED FOR UNKNOWN INDICATION
  6. FUNGILIN [Concomitant]
     Active Substance: AMPHOTERICIN B
     Indication: ORAL CANDIDIASIS
  7. ALLEGRON [Concomitant]
     Indication: PRODUCT USED FOR UNKNOWN INDICATION
  8. SEROQUEL [Concomitant]
     Active Substance: QUETIAPINE FUMARATE
     Indication: AFFECTIVE DISORDER
  9. PHYSEPTONE [Concomitant]
     Indication: PRODUCT USED FOR UNKNOWN INDICATION
     Dosage: ONE FOURTH TAB OF 10 MG TAB EVERY 2 HOURS AND HALF
  10. PREDNISOLONE. [Concomitant]
     Active Substance: PREDNISOLONE
     Indication: ARTHRITIS
  11. PANADOL [Concomitant]
     Active Substance: ACETAMINOPHEN
     Indication: PRODUCT USED FOR UNKNOWN INDICATION
     Dosage: 2-4 TABLETS
  12. KALMA [Concomitant]
     Active Substance: ALPRAZOLAM
     Indication: PRODUCT USED FOR UNKNOWN INDICATION
  13. PARIET [Concomitant]
     Active Substance: RABEPRAZOLE SODIUM
     Indication: PRODUCT USED FOR UNKNOWN INDICATION
  14. ZYRTEC [Concomitant]
     Active Substance: CETIRIZINE HYDROCHLORIDE
     Indication: HYPERSENSITIVITY
  15. CLIMARA [Concomitant]
     Active Substance: ESTRADIOL
     Indication: PRODUCT USED FOR UNKNOWN INDICATION
     Dosage: 25 PATCH ON TUESDAY; 50 PATCH THURSDAY
  16. METHOTREXATE [Suspect]
     Active Substance: METHOTREXATE
     Indication: PRODUCT USED FOR UNKNOWN INDICATION
     Dosage: EVERY FRIDAY
     Route: 065
     Dates: end: 201502
  17. CORTISONE [Concomitant]
     Active Substance: CORTISONE\HYDROCORTISONE
     Indication: PRODUCT USED FOR UNKNOWN INDICATION
  18. BISALAX [Concomitant]
     Indication: CONSTIPATION
  19. SANDOMIGRAN [Concomitant]
     Active Substance: PIZOTYLINE
     Indication: PRODUCT USED FOR UNKNOWN INDICATION
  20. ALPRAZOLAM. [Concomitant]
     Active Substance: ALPRAZOLAM
     Indication: PRODUCT USED FOR UNKNOWN INDICATION
     Dosage: 0.5 TABLET
  21. REFRESH OPTIVE [Concomitant]
     Active Substance: CARBOXYMETHYLCELLULOSE SODIUM\GLYCERIN
     Indication: DIPLOPIA

REACTIONS (19)
  - Aggression [Unknown]
  - Blepharitis [Unknown]
  - Pain [Not Recovered/Not Resolved]
  - Breast tenderness [Unknown]
  - Fatigue [Unknown]
  - Diplopia [Not Recovered/Not Resolved]
  - Oedema [Unknown]
  - Breast disorder female [Unknown]
  - Breast swelling [Recovered/Resolved]
  - Lymphadenopathy [Unknown]
  - Breast haemorrhage [Unknown]
  - Conjunctivitis [Not Recovered/Not Resolved]
  - Breast hyperplasia [Unknown]
  - Lymphoproliferative disorder [Unknown]
  - Breast pain [Unknown]
  - Chronic sinusitis [Not Recovered/Not Resolved]
  - Flushing [Not Recovered/Not Resolved]
  - Breast enlargement [Unknown]
  - Hyperhidrosis [Unknown]

NARRATIVE: CASE EVENT DATE: 2014
